FAERS Safety Report 7411218-8 (Version None)
Quarter: 2011Q2

REPORT INFORMATION
  Report Type: 
  Country: None (occurrence: None)
  Receive Date: 20110413
  Receipt Date: 20100401
  Transmission Date: 20111010
  Serious: Yes (Other)
  Sender: FDA-Public Use
  Company Number: US-BRISTOL-MYERS SQUIBB COMPANY-15046048

PATIENT
  Age: 48 Year
  Sex: Male

DRUGS (3)
  1. ERBITUX [Suspect]
     Indication: LUNG CANCER METASTATIC
  2. ERBITUX [Suspect]
     Indication: HEPATIC CANCER METASTATIC
  3. ERBITUX [Suspect]
     Indication: PANCREATIC CARCINOMA METASTATIC

REACTIONS (1)
  - NEOPLASM MALIGNANT [None]
